FAERS Safety Report 16859984 (Version 2)
Quarter: 2019Q4

REPORT INFORMATION
  Report Type: Report from Study
  Country: None (occurrence: US)
  Receive Date: 20190927
  Receipt Date: 20191104
  Transmission Date: 20200122
  Serious: Yes (Other)
  Sender: FDA-Public Use
  Company Number: US-ABBVIE-19K-163-2937032-00

PATIENT
  Age: 62 Year
  Sex: Male
  Weight: 95.34 kg

DRUGS (3)
  1. HUMIRA [Suspect]
     Active Substance: ADALIMUMAB
     Indication: NEUROPATHY PERIPHERAL
  2. HUMIRA [Suspect]
     Active Substance: ADALIMUMAB
     Indication: OSTEOARTHRITIS
     Dosage: START DATE-ABOUT 2-3 YEARS AGO?STOP DATE-- 3-6 MONTHS UPON STARTING
     Route: 058
  3. HUMIRA [Suspect]
     Active Substance: ADALIMUMAB
     Indication: RHEUMATOID ARTHRITIS
     Dosage: STOP DATE  -ABOUT 3-6 MONTHS UPON STARTING
     Route: 058
     Dates: start: 2016

REACTIONS (4)
  - Blister [Recovered/Resolved]
  - Off label use [Unknown]
  - Precancerous skin lesion [Recovered/Resolved]
  - Precancerous cells present [Recovered/Resolved]

NARRATIVE: CASE EVENT DATE: 201906
